FAERS Safety Report 10726316 (Version 1)
Quarter: 2015Q1

REPORT INFORMATION
  Report Type: Spontaneous
  Country: GB (occurrence: GB)
  Receive Date: 20150121
  Receipt Date: 20150121
  Transmission Date: 20150721
  Serious: Yes (Other)
  Sender: FDA-Public Use
  Company Number: PHHY2015GB005052

PATIENT
  Age: 67 Year
  Sex: Female
  Weight: 61.68 kg

DRUGS (1)
  1. SIMVASTATINE [Suspect]
     Active Substance: SIMVASTATIN
     Indication: BLOOD CHOLESTEROL INCREASED
     Dosage: 40 MG, UNK
     Route: 048
     Dates: start: 2010, end: 201309

REACTIONS (3)
  - Restless legs syndrome [Recovered/Resolved with Sequelae]
  - Neuropathy peripheral [Not Recovered/Not Resolved]
  - Muscle disorder [Recovered/Resolved with Sequelae]
